FAERS Safety Report 5206486-7 (Version None)
Quarter: 2007Q1

REPORT INFORMATION
  Report Type: 
  Country: None (occurrence: None)
  Receive Date: 20070111
  Receipt Date: 20070109
  Transmission Date: 20070707
  Serious: Yes (Life-Threatening, Disabling)
  Sender: FDA-Public Use
  Company Number: US-BRISTOL-MYERS SQUIBB COMPANY-13616891

PATIENT
  Age: 43 Year
  Sex: Male

DRUGS (9)
  1. REYATAZ [Suspect]
     Indication: HIV INFECTION
     Route: 048
     Dates: start: 20060522, end: 20060703
  2. LIPITOR [Concomitant]
  3. OMACOR [Concomitant]
  4. ACYCLOVIR [Concomitant]
  5. VITAMIN B COMPLEX CAP [Concomitant]
  6. IBUPROFEN [Concomitant]
  7. PROGESTIN INJ [Concomitant]
  8. EPZICOM [Concomitant]
  9. ZETIA [Concomitant]

REACTIONS (2)
  - DEPRESSION [None]
  - SUICIDAL IDEATION [None]
